FAERS Safety Report 7583298-0 (Version None)
Quarter: 2011Q2

REPORT INFORMATION
  Report Type: 
  Country: None (occurrence: None)
  Receive Date: 20110630
  Receipt Date: 20110628
  Transmission Date: 20111010
  Serious: Yes (Death)
  Sender: FDA-Public Use
  Company Number: US-B.I. PHARMACEUTICALS,INC./RIDGEFIELD-2011-BP-16538BP

PATIENT
  Age: 77 Year
  Sex: Female

DRUGS (7)
  1. CYMBALTA [Concomitant]
     Indication: DEPRESSION
     Dates: start: 19940101
  2. COREG [Concomitant]
     Indication: CARDIOMYOPATHY
     Dosage: 6.25 MG
     Dates: start: 19940101
  3. KLONOPIN [Concomitant]
     Indication: DEPRESSION
     Dates: start: 19940101
  4. TRAMADOL HCL [Concomitant]
     Dates: start: 19940101
  5. PRADAXA [Suspect]
     Indication: ATRIAL FIBRILLATION
     Dosage: 300 MG
     Route: 048
     Dates: start: 20110606, end: 20110626
  6. TORSEMIDE [Concomitant]
     Indication: HYPERTENSION
     Dates: start: 19940101
  7. TORSEMIDE [Concomitant]
     Indication: RENAL FAILURE CHRONIC

REACTIONS (1)
  - RENAL FAILURE [None]
